FAERS Safety Report 6171238-0 (Version None)
Quarter: 2009Q2

REPORT INFORMATION
  Report Type: 
  Country: None (occurrence: None)
  Receive Date: 20090429
  Receipt Date: 20090421
  Transmission Date: 20091009
  Serious: Yes (Death)
  Sender: FDA-Public Use
  Company Number: GB-JNJFOC-20090405082

PATIENT
  Age: 51 Year
  Sex: Female

DRUGS (10)
  1. REMICADE [Suspect]
     Indication: ANKYLOSING SPONDYLITIS
     Route: 042
  2. ACETAMINOPHEN WITH PROPOXYPHENE HCL TAB [Concomitant]
  3. AMITRIPTLINE HYDROCHLORIDE TAB [Concomitant]
  4. CELEBREX [Concomitant]
  5. DIHYDROCODEINE BITARTRATE INJ [Concomitant]
  6. DEFLAZACORT [Concomitant]
  7. ESOMEPRAZOLE [Concomitant]
  8. FOSAMAX [Concomitant]
  9. PERINDOPRIL [Concomitant]
  10. QUININE SULPHATE [Concomitant]

REACTIONS (1)
  - DEATH [None]
